FAERS Safety Report 5234753-X (Version None)
Quarter: 2007Q1

REPORT INFORMATION
  Report Type: 
  Country: None (occurrence: None)
  Receive Date: 20070209
  Receipt Date: 20070130
  Transmission Date: 20070707
  Serious: Yes (Death, Hospitalization)
  Sender: FDA-Public Use
  Company Number: IT-ELI_LILLY_AND_COMPANY-IT200701005647

PATIENT
  Age: 57 Year
  Sex: Male

DRUGS (3)
  1. PEMETREXED [Suspect]
     Indication: LUNG NEOPLASM MALIGNANT
     Dosage: 500 MG/M2, UNK
     Route: 042
     Dates: start: 20060109, end: 20070109
  2. FOLIC ACID [Concomitant]
     Indication: ANAEMIA FOLATE DEFICIENCY
     Dosage: 400 UG, UNK
     Route: 048
  3. DOBETIN [Concomitant]
     Indication: ANAEMIA FOLATE DEFICIENCY
     Dosage: 1000 MG, UNK
     Route: 030

REACTIONS (5)
  - DRUG ERUPTION [None]
  - MUCOSAL HAEMORRHAGE [None]
  - MUCOSAL INFLAMMATION [None]
  - PANCYTOPENIA [None]
  - RENAL FAILURE ACUTE [None]
